FAERS Safety Report 7824416-6 (Version None)
Quarter: 2011Q4

REPORT INFORMATION
  Report Type: 
  Country: None (occurrence: None)
  Receive Date: 20111019
  Receipt Date: 20111006
  Transmission Date: 20120403
  Serious: Yes (Other)
  Sender: FDA-Public Use
  Company Number: CA-JNJFOC-20111007444

PATIENT
  Sex: Female
  Weight: 71.1 kg

DRUGS (6)
  1. HORMONE REPLACEMENT [Concomitant]
  2. ZOLOFT [Concomitant]
  3. LYRICA [Concomitant]
  4. METHOTREXATE [Concomitant]
     Dates: end: 20110101
  5. SYNTHROID [Concomitant]
  6. REMICADE [Suspect]
     Indication: RHEUMATOID ARTHRITIS
     Dates: start: 20050615

REACTIONS (1)
  - PNEUMOTHORAX [None]
